FAERS Safety Report 6762437-5 (Version None)
Quarter: 2010Q2

REPORT INFORMATION
  Report Type: 
  Country: None (occurrence: None)
  Receive Date: 20100609
  Receipt Date: 20100528
  Transmission Date: 20101027
  Serious: Yes (Death)
  Sender: FDA-Public Use
  Company Number: US-WYE-H15410510

PATIENT
  Sex: Female
  Weight: 136.2 kg

DRUGS (14)
  1. DEXTROMETHORPHAN HYDROBROMIDE [Suspect]
     Indication: DRUG USE FOR UNKNOWN INDICATION
     Dosage: UNKNOWN
     Route: 048
     Dates: end: 20100201
  2. CELEXA [Suspect]
     Indication: DRUG USE FOR UNKNOWN INDICATION
     Route: 048
     Dates: end: 20100201
  3. ALBUTEROL [Concomitant]
     Indication: DRUG USE FOR UNKNOWN INDICATION
     Route: 055
  4. CELEBREX [Concomitant]
     Indication: DRUG USE FOR UNKNOWN INDICATION
     Route: 048
  5. NAPROSYN [Concomitant]
     Indication: DRUG USE FOR UNKNOWN INDICATION
     Route: 048
  6. PRILOSEC [Concomitant]
     Indication: DRUG USE FOR UNKNOWN INDICATION
     Route: 048
  7. NEURONTIN [Concomitant]
     Indication: DRUG USE FOR UNKNOWN INDICATION
     Route: 048
  8. ROZEREM [Concomitant]
     Indication: DRUG USE FOR UNKNOWN INDICATION
     Dosage: 8 MG EVERY 1 PRN
     Route: 048
  9. SINGULAIR [Concomitant]
     Indication: DRUG USE FOR UNKNOWN INDICATION
     Route: 048
  10. ADVAIR DISKUS 100/50 [Concomitant]
     Indication: DRUG USE FOR UNKNOWN INDICATION
     Dosage: 250/50
     Route: 048
     Dates: start: 20090501
  11. KLONOPIN [Concomitant]
     Indication: DRUG USE FOR UNKNOWN INDICATION
     Dosage: 1 MG EVERY 1 PRN
     Route: 048
  12. KADIAN [Suspect]
     Indication: BACK PAIN
     Dosage: UNKNOWN
     Route: 048
     Dates: start: 20090101
  13. KADIAN [Suspect]
     Route: 048
     Dates: end: 20100201
  14. LASIX [Concomitant]
     Indication: DRUG USE FOR UNKNOWN INDICATION
     Route: 048
     Dates: start: 20090501

REACTIONS (8)
  - ARTERIOSCLEROSIS [None]
  - CARDIAC FAILURE CONGESTIVE [None]
  - EMPHYSEMA [None]
  - HEPATIC FIBROSIS [None]
  - HEPATIC STEATOSIS [None]
  - HYPERTENSIVE HEART DISEASE [None]
  - PULMONARY CONGESTION [None]
  - PYELONEPHRITIS CHRONIC [None]
